FAERS Safety Report 5274167-X (Version None)
Quarter: 2007Q1

REPORT INFORMATION
  Report Type: 
  Country: None (occurrence: None)
  Receive Date: 20070323
  Receipt Date: 20070312
  Transmission Date: 20070707
  Serious: Yes (Hospitalization)
  Sender: FDA-Public Use
  Company Number: US-SHR-US-2007-002680

PATIENT
  Age: 64 Year
  Sex: Female
  Weight: 82.54 kg

DRUGS (6)
  1. BETASERON [Suspect]
     Indication: SECONDARY PROGRESSIVE MULTIPLE SCLEROSIS
     Dosage: 8 MIU, EVERY 2D
     Route: 058
     Dates: start: 20050201
  2. CORTICOSTEROIDS [Concomitant]
  3. NEURONTIN [Concomitant]
     Indication: PAIN
     Dosage: 600 MG, UNK
     Route: 048
  4. FLOMAX [Concomitant]
     Dosage: .4 MG, UNK
  5. NIFEDICAL [Concomitant]
     Dosage: X QD, XL
  6. AMANTADINE HCL [Concomitant]
     Indication: BLOOD PRESSURE MANAGEMENT
     Dosage: 1000 MG, 2X/DAY

REACTIONS (5)
  - DRUG DOSE OMISSION [None]
  - FALL [None]
  - LUMBAR SPINAL STENOSIS [None]
  - MULTIPLE SCLEROSIS [None]
  - VITAMIN B12 DECREASED [None]
